FAERS Safety Report 5435986-X (Version None)
Quarter: 2007Q3

REPORT INFORMATION
  Report Type: 
  Country: None (occurrence: None)
  Receive Date: 20070831
  Receipt Date: 20070824
  Transmission Date: 20080115
  Serious: Yes (Other)
  Sender: FDA-Public Use
  Company Number: A0676149A

PATIENT
  Age: 39 Year
  Sex: Male

DRUGS (5)
  1. LAMICTAL [Suspect]
     Indication: BIPOLAR DISORDER
     Dosage: 250MG PER DAY
     Route: 048
     Dates: start: 20050101
  2. WELLBUTRIN XL [Suspect]
     Indication: DRUG USE FOR UNKNOWN INDICATION
     Dosage: 150MG PER DAY
     Route: 048
  3. ZOLOFT [Concomitant]
  4. TRUVADA [Concomitant]
  5. VIRAMUNE [Concomitant]

REACTIONS (2)
  - HEPATIC ENZYME INCREASED [None]
  - MANIA [None]
